FAERS Safety Report 17304697 (Version 1)
Quarter: 2020Q1

REPORT INFORMATION
  Report Type: Spontaneous
  Country: US (occurrence: US)
  Receive Date: 20200122
  Receipt Date: 20200122
  Transmission Date: 20200409
  Serious: No
  Sender: FDA-Public Use
  Company Number: US-AMGEN-USASP2020009227

PATIENT
  Age: 72 Year
  Sex: Female

DRUGS (14)
  1. ASPIRIN. [Concomitant]
     Active Substance: ASPIRIN
  2. CIPROFLOXACIN HCL [Concomitant]
     Active Substance: CIPROFLOXACIN HYDROCHLORIDE
  3. CRANBERRY EXTRACT [VACCINIUM MACROCARPON] [Concomitant]
  4. TRIAMCINOLONE ACETONIDE. [Concomitant]
     Active Substance: TRIAMCINOLONE ACETONIDE
  5. REPATHA [Suspect]
     Active Substance: EVOLOCUMAB
     Indication: IMMUNISATION
     Dosage: 140 MILLIGRAM, Q2WK
     Route: 058
     Dates: start: 20181221
  6. HYDROCHLOROTHIAZIDE. [Concomitant]
     Active Substance: HYDROCHLOROTHIAZIDE
  7. CHOLECALCIFEROL [Concomitant]
     Active Substance: CHOLECALCIFEROL
  8. SYNTHROID [Concomitant]
     Active Substance: LEVOTHYROXINE SODIUM
  9. ZOLOFT [Concomitant]
     Active Substance: SERTRALINE HYDROCHLORIDE
  10. THERAPEUTIC MULTIVITAMIN [Concomitant]
  11. ASPIRIN 81 [Concomitant]
     Active Substance: ASPIRIN
  12. CHLORTHALIDONE. [Concomitant]
     Active Substance: CHLORTHALIDONE
  13. FOSAMAX [Concomitant]
     Active Substance: ALENDRONATE SODIUM
  14. NIASPAN [Concomitant]
     Active Substance: NIACIN

REACTIONS (1)
  - Product dose omission [Not Recovered/Not Resolved]

NARRATIVE: CASE EVENT DATE: 2019
